FAERS Safety Report 25599362 (Version 2)
Quarter: 2025Q4

REPORT INFORMATION
  Report Type: Report from Study
  Country: US (occurrence: US)
  Receive Date: 20250724
  Receipt Date: 20251017
  Transmission Date: 20260117
  Serious: No
  Sender: SANDOZ
  Company Number: US-SANDOZ-SDZ2025US052168

PATIENT

DRUGS (1)
  1. GLATOPA [Suspect]
     Active Substance: GLATIRAMER ACETATE
     Indication: Product used for unknown indication
     Dosage: 20 MG N/A DOSE EVERY N/A
     Route: 065

REACTIONS (3)
  - Circumstance or information capable of leading to device use error [Unknown]
  - Device malfunction [Unknown]
  - Device breakage [Unknown]
